FAERS Safety Report 23421119 (Version 1)
Quarter: 2024Q1

REPORT INFORMATION
  Report Type: Spontaneous
  Country: GB (occurrence: GB)
  Receive Date: 20240119
  Receipt Date: 20240119
  Transmission Date: 20240410
  Serious: Yes (Hospitalization, Other)
  Sender: FDA-Public Use
  Company Number: GB-WINDERLABS-2024WILIT00001

PATIENT
  Age: 5 Decade
  Sex: Male

DRUGS (2)
  1. MORPHINE SULFATE [Suspect]
     Active Substance: MORPHINE SULFATE
     Indication: Back pain
     Dosage: 60 EMPTY PACKS OF MR MORPHINE, TWO EMPTY BOTTLES OF 10MG/5ML MORPHINE SOLUTION (200ML IN TOTAL)
     Route: 065
  2. TRAMADOL [Concomitant]
     Active Substance: TRAMADOL\TRAMADOL HYDROCHLORIDE
     Indication: Back pain
     Route: 065

REACTIONS (6)
  - Toxic leukoencephalopathy [Recovering/Resolving]
  - Brain injury [Recovering/Resolving]
  - Hepatotoxicity [Unknown]
  - Acute kidney injury [Unknown]
  - Suicide attempt [Unknown]
  - Intentional overdose [Unknown]
